FAERS Safety Report 8461571-1 (Version None)
Quarter: 2012Q2

REPORT INFORMATION
  Report Type: 
  Country: None (occurrence: None)
  Receive Date: 20120625
  Receipt Date: 20120619
  Transmission Date: 20120825
  Serious: No
  Sender: FDA-Public Use
  Company Number: PHEH2012US005361

PATIENT
  Sex: Female
  Weight: 84.807 kg

DRUGS (6)
  1. LEVOTHYROXINE SODIUM [Concomitant]
  2. SIMVASTATIN [Concomitant]
  3. IBUPROFEN [Concomitant]
  4. GABAPENTIN [Concomitant]
  5. TASIGNA [Suspect]
     Indication: NEOPLASM MALIGNANT
     Dosage: 400 MG, BID
     Route: 048
     Dates: start: 20100826
  6. LOSARTAN POTASSIUM [Concomitant]

REACTIONS (5)
  - WEIGHT INCREASED [None]
  - INCREASED APPETITE [None]
  - FEELING COLD [None]
  - SKIN DISCOLOURATION [None]
  - RASH [None]
